FAERS Safety Report 20703634 (Version 1)
Quarter: 2022Q2

REPORT INFORMATION
  Report Type: Spontaneous
  Country: ES (occurrence: ES)
  Receive Date: 20220413
  Receipt Date: 20220413
  Transmission Date: 20220720
  Serious: Yes (Hospitalization)
  Sender: FDA-Public Use
  Company Number: ES-SA-SAC20220323000309

PATIENT
  Age: 69 Year
  Sex: Male
  Weight: 94.4 kg

DRUGS (3)
  1. METFORMIN [Suspect]
     Active Substance: METFORMIN HYDROCHLORIDE
     Indication: Type 2 diabetes mellitus
     Dosage: UNK UNK, TWO TIMES A DAY
     Route: 048
  2. INSULIN GLARGINE [Suspect]
     Active Substance: INSULIN GLARGINE
     Indication: Type 2 diabetes mellitus
     Dosage: 10 DOSAGE FORM, ONCE A DAY
     Route: 058
  3. INSULIN NOS [Concomitant]
     Active Substance: INSULIN NOS
     Indication: Type 2 diabetes mellitus
     Dosage: 15 DOSAGE FORM, 3 TIMES A DAY
     Route: 065

REACTIONS (4)
  - Intentional device misuse [Unknown]
  - Blood glucose decreased [Unknown]
  - Hospitalisation [Unknown]
  - Product dose omission issue [Unknown]
